FAERS Safety Report 9010348 (Version 2)
Quarter: 2013Q1

REPORT INFORMATION
  Report Type: Spontaneous
  Country: US (occurrence: US)
  Receive Date: 20130111
  Receipt Date: 20130307
  Transmission Date: 20140127
  Serious: Yes (Hospitalization)
  Sender: FDA-Public Use
  Company Number: US-ELI_LILLY_AND_COMPANY-US201202005995

PATIENT
  Age: 25 None
  Sex: Male

DRUGS (8)
  1. FORTEO [Suspect]
     Indication: OSTEOPOROSIS
     Dosage: UNK UNK, QD
     Dates: start: 201105
  2. FORTEO [Suspect]
     Dosage: UNK UNK, QD
  3. FORTEO [Suspect]
     Dosage: UNK UNK, QD
     Route: 065
  4. FORTEO [Suspect]
     Dosage: 20 UG, QD
     Dates: start: 201106
  5. FORTEO [Suspect]
     Dosage: 20 UG, QD
  6. HCG [Concomitant]
     Dosage: UNK
  7. VITAMIN D NOS [Concomitant]
  8. CALCIUM [Concomitant]

REACTIONS (17)
  - Sialoadenitis [Unknown]
  - Olfacto genital dysplasia [Unknown]
  - Dehydration [Unknown]
  - Epistaxis [Recovered/Resolved]
  - Epistaxis [Unknown]
  - Stress [Unknown]
  - Dysgeusia [Unknown]
  - Vomiting [Unknown]
  - Nausea [Unknown]
  - Drug dose omission [Unknown]
  - Incorrect storage of drug [Recovered/Resolved]
  - Pain [Unknown]
  - Nephrolithiasis [Unknown]
  - Diarrhoea [Unknown]
  - Gastrointestinal disorder [Unknown]
  - Sinusitis [Unknown]
  - Sinusitis [Unknown]
